APPROVED DRUG PRODUCT: LAMOTRIGINE
Active Ingredient: LAMOTRIGINE
Strength: 100MG
Dosage Form/Route: TABLET, EXTENDED RELEASE;ORAL
Application: A202887 | Product #003 | TE Code: AB
Applicant: RUBICON RESEARCH LTD
Approved: Jun 17, 2013 | RLD: No | RS: No | Type: RX